FAERS Safety Report 9467410 (Version 1)
Quarter: 2013Q3

REPORT INFORMATION
  Report Type: Spontaneous
  Country: US (occurrence: None)
  Receive Date: 20130819
  Receipt Date: 20130819
  Transmission Date: 20140515
  Serious: Yes (Life-Threatening)
  Sender: FDA-Public Use
  Company Number: None

PATIENT
  Age: 91 Year
  Sex: Male
  Weight: 83.92 kg

DRUGS (9)
  1. PIOGLITAZONE [Suspect]
     Indication: DIABETES MELLITUS
     Dosage: 1 PILL  QD ORAL?}6 YRS
     Route: 048
  2. TRICOR [Concomitant]
  3. AMARYL [Concomitant]
  4. PROZAC [Concomitant]
  5. DIOVAN [Concomitant]
  6. VERAPAMIL [Concomitant]
  7. CARVEDILOL [Concomitant]
  8. LASIX [Concomitant]
  9. CATAPRESSAN [Concomitant]

REACTIONS (1)
  - Bladder cancer [None]
